FAERS Safety Report 7550675-3 (Version None)
Quarter: 2011Q2

REPORT INFORMATION
  Report Type: 
  Country: None (occurrence: None)
  Receive Date: 20110609
  Receipt Date: 20110524
  Transmission Date: 20111010
  Serious: Yes (Hospitalization, Other)
  Sender: FDA-Public Use
  Company Number: 2011MA006448

PATIENT
  Age: 65 Year
  Sex: Female

DRUGS (8)
  1. PREDNISONE [Concomitant]
  2. TACROLIMUS [Concomitant]
  3. MYCOPHENOLATE MEFETIL [Concomitant]
  4. ITRACONZOLE [Concomitant]
  5. VALGANCICLOVIR [Concomitant]
  6. OMEPRAZOLE [Concomitant]
  7. DAPSONE [Concomitant]
  8. LIDOCAINE HCL [Suspect]
     Indication: BRONCHOSCOPY
     Dosage: 2 PCT/10ML;

REACTIONS (6)
  - CONDITION AGGRAVATED [None]
  - CYANOSIS [None]
  - TACHYCARDIA [None]
  - METHAEMOGLOBINAEMIA [None]
  - DYSPNOEA [None]
  - WHEEZING [None]
